FAERS Safety Report 14907626 (Version 1)
Quarter: 2018Q2

REPORT INFORMATION
  Report Type: Spontaneous
  Country: GB (occurrence: GB)
  Receive Date: 20180517
  Receipt Date: 20180517
  Transmission Date: 20180711
  Serious: Yes (Hospitalization, Other)
  Sender: FDA-Public Use
  Company Number: GB-TEVA-2018-GB-893568

PATIENT
  Age: 73 Year
  Sex: Male

DRUGS (7)
  1. XARELTO [Interacting]
     Active Substance: RIVAROXABAN
     Indication: THROMBOSIS PROPHYLAXIS
     Dosage: 10 MILLIGRAM DAILY;
     Route: 048
     Dates: start: 20171024
  2. TRIMETHOPRIM. [Suspect]
     Active Substance: TRIMETHOPRIM
     Indication: URINARY TRACT INFECTION
     Dosage: 400 MILLIGRAM DAILY;
     Route: 048
     Dates: start: 20171028
  3. CODEINE [Concomitant]
     Active Substance: CODEINE
     Route: 065
  4. BISOPROLOL [Concomitant]
     Active Substance: BISOPROLOL
     Route: 065
  5. FLUTICASONE. [Concomitant]
     Active Substance: FLUTICASONE
     Route: 065
  6. ACETYLSALICYLIC ACID [Concomitant]
     Active Substance: ASPIRIN
     Indication: CORONARY ARTERY BYPASS
     Dosage: LONG TERM
     Route: 065
  7. SIMVASTATIN. [Concomitant]
     Active Substance: SIMVASTATIN
     Route: 065

REACTIONS (7)
  - Contusion [Unknown]
  - Tachycardia [Unknown]
  - Syncope [Unknown]
  - Drug interaction [Unknown]
  - Post procedural haemorrhage [Recovering/Resolving]
  - Haematoma [Unknown]
  - Haemodynamic instability [Unknown]

NARRATIVE: CASE EVENT DATE: 20171030
